FAERS Safety Report 18187488 (Version 1)
Quarter: 2020Q3

REPORT INFORMATION
  Report Type: Spontaneous
  Country: US (occurrence: US)
  Receive Date: 20200824
  Receipt Date: 20200824
  Transmission Date: 20201103
  Serious: No
  Sender: FDA-Public Use
  Company Number: US-CELLTRION INC.-2020US017793

PATIENT

DRUGS (1)
  1. INFLECTRA [Suspect]
     Active Substance: INFLIXIMAB-DYYB
     Indication: CROHN^S DISEASE
     Dosage: 100 MG, EVERY 8 WEEKS, INFUSION
     Route: 065
     Dates: start: 201904

REACTIONS (4)
  - Weight decreased [Unknown]
  - Unevaluable event [Unknown]
  - Inflammation [Unknown]
  - Product dose omission issue [Unknown]
